FAERS Safety Report 6198201-8 (Version None)
Quarter: 2009Q2

REPORT INFORMATION
  Report Type: 
  Country: None (occurrence: None)
  Receive Date: 20090521
  Receipt Date: 20090513
  Transmission Date: 20091009
  Serious: Yes (Hospitalization)
  Sender: FDA-Public Use
  Company Number: DE-MERCK-0905USA02163

PATIENT
  Age: 38 Year
  Sex: Female

DRUGS (2)
  1. CORTISONE ACETATE [Suspect]
     Indication: ORGANISING PNEUMONIA
     Route: 048
     Dates: start: 20060501
  2. CORTISONE ACETATE [Suspect]
     Route: 048

REACTIONS (8)
  - ANTIPHOSPHOLIPID ANTIBODIES [None]
  - CEREBRAL INFARCTION [None]
  - FLUID RETENTION [None]
  - HYPERVOLAEMIA [None]
  - HYPOKINESIA [None]
  - INTRACARDIAC THROMBUS [None]
  - PNEUMONIA [None]
  - WEIGHT INCREASED [None]
